FAERS Safety Report 6067809-2 (Version None)
Quarter: 2009Q1

REPORT INFORMATION
  Report Type: 
  Country: None (occurrence: None)
  Receive Date: 20090205
  Receipt Date: 20090126
  Transmission Date: 20090719
  Serious: Yes (Hospitalization)
  Sender: FDA-Public Use
  Company Number: SE-MERCK-0901SWE00018

PATIENT
  Age: 73 Year
  Sex: Male

DRUGS (6)
  1. ZOCOR [Suspect]
     Route: 048
     Dates: start: 19970101, end: 20081130
  2. GLYBURIDE [Concomitant]
     Route: 048
  3. ASPIRIN [Concomitant]
     Route: 048
  4. ZOPICLONE [Concomitant]
     Route: 048
  5. FELODIPINE [Concomitant]
     Route: 048
  6. METOPROLOL TARTRATE [Concomitant]
     Route: 048

REACTIONS (3)
  - C-REACTIVE PROTEIN INCREASED [None]
  - LABORATORY TEST ABNORMAL [None]
  - PYREXIA [None]
